FAERS Safety Report 10737483 (Version 1)
Quarter: 2015Q1

REPORT INFORMATION
  Report Type: Spontaneous
  Country: US (occurrence: None)
  Receive Date: 20150122
  Receipt Date: 20150122
  Transmission Date: 20150721
  Serious: Yes (Other)
  Sender: FDA-Public Use
  Company Number: None

PATIENT
  Age: 15 Year
  Sex: Male

DRUGS (1)
  1. CONCERTA [Suspect]
     Active Substance: METHYLPHENIDATE HYDROCHLORIDE
     Dosage: 36 1 DA PO
     Route: 048
     Dates: start: 201412

REACTIONS (3)
  - Aggression [None]
  - Irritability [None]
  - Deafness [None]

NARRATIVE: CASE EVENT DATE: 20141220
